FAERS Safety Report 17471754 (Version 1)
Quarter: 2020Q1

REPORT INFORMATION
  Report Type: Spontaneous
  Country: US (occurrence: US)
  Receive Date: 20200228
  Receipt Date: 20200228
  Transmission Date: 20200409
  Serious: Yes (Other)
  Sender: FDA-Public Use
  Company Number: US-BRISTOL-MYERS SQUIBB COMPANY-BMS-2020-015372

PATIENT
  Sex: Male
  Weight: 79.37 kg

DRUGS (1)
  1. OPDIVO [Suspect]
     Active Substance: NIVOLUMAB
     Indication: MALIGNANT MELANOMA
     Dosage: 240 MILLIGRAM, Q2WK
     Route: 042
     Dates: start: 201807, end: 201811

REACTIONS (6)
  - Immunodeficiency [Unknown]
  - Hypertension [Unknown]
  - Arthritis [Unknown]
  - Lymphadenopathy [Unknown]
  - Productive cough [Unknown]
  - Hypoacusis [Unknown]
